FAERS Safety Report 6670272-1 (Version None)
Quarter: 2010Q2

REPORT INFORMATION
  Report Type: 
  Country: None (occurrence: None)
  Receive Date: 20100405
  Receipt Date: 20100312
  Transmission Date: 20101027
  Serious: Yes (Other)
  Sender: FDA-Public Use
  Company Number: DSJ-2010-04865

PATIENT
  Age: 63 Year
  Sex: Female

DRUGS (6)
  1. BENICAR [Suspect]
     Indication: HYPERTENSION
     Dosage: 40 MG (1 IN 1D), PER ORAL
     Route: 048
     Dates: start: 20080101, end: 20091201
  2. INSULIN (INSULIN) (INSULIN) [Concomitant]
  3. AMLODIPINE [Concomitant]
  4. CITALOPRAM HYDROBROMIDE [Concomitant]
  5. FUROSEMIDE [Concomitant]
  6. LEVOTHYROXINE SODIUM [Concomitant]

REACTIONS (1)
  - ANAEMIA [None]
